FAERS Safety Report 9467835 (Version 1)
Quarter: 2013Q3

REPORT INFORMATION
  Report Type: Spontaneous
  Country: US (occurrence: None)
  Receive Date: 20130819
  Receipt Date: 20130819
  Transmission Date: 20140515
  Serious: No
  Sender: FDA-Public Use
  Company Number: None

PATIENT
  Sex: 0

DRUGS (1)
  1. SYMMETREL [Suspect]

REACTIONS (11)
  - Dehydration [None]
  - Medication error [None]
  - Insomnia [None]
  - Hallucination [None]
  - Agitation [None]
  - Renal impairment [None]
  - Mental status changes [None]
  - Hypertension [None]
  - Condition aggravated [None]
  - Drug dispensing error [None]
  - Incorrect dose administered [None]
